FAERS Safety Report 18294116 (Version 5)
Quarter: 2023Q4

REPORT INFORMATION
  Report Type: Report from Study
  Country: US (occurrence: US)
  Receive Date: 20200922
  Receipt Date: 20231023
  Transmission Date: 20240110
  Serious: Yes (Hospitalization, Other)
  Sender: FDA-Public Use
  Company Number: US-SHIRE-US202030766

PATIENT
  Age: 72 Year
  Sex: Male

DRUGS (8)
  1. TEDUGLUTIDE [Suspect]
     Active Substance: TEDUGLUTIDE
     Indication: Short-bowel syndrome
     Dosage: 0.32 INTERNATIONAL UNIT, QD
     Route: 058
     Dates: start: 20160817
  2. TEDUGLUTIDE [Suspect]
     Active Substance: TEDUGLUTIDE
     Indication: Short-bowel syndrome
     Dosage: 0.32 INTERNATIONAL UNIT, QD
     Route: 058
     Dates: start: 20160817
  3. TEDUGLUTIDE [Suspect]
     Active Substance: TEDUGLUTIDE
     Indication: Short-bowel syndrome
     Dosage: 0.32 INTERNATIONAL UNIT, QD
     Route: 058
     Dates: start: 20160817
  4. TEDUGLUTIDE [Suspect]
     Active Substance: TEDUGLUTIDE
     Indication: Short-bowel syndrome
     Dosage: 0.32 INTERNATIONAL UNIT, QD
     Route: 058
     Dates: start: 20160817
  5. TEDUGLUTIDE [Suspect]
     Active Substance: TEDUGLUTIDE
     Dosage: 3.2 MILLIGRAM, QD
     Route: 058
     Dates: start: 20161026
  6. TEDUGLUTIDE [Suspect]
     Active Substance: TEDUGLUTIDE
     Dosage: 3.2 MILLIGRAM, QD
     Route: 058
     Dates: start: 20161026
  7. TEDUGLUTIDE [Suspect]
     Active Substance: TEDUGLUTIDE
     Dosage: 3.2 MILLIGRAM, QD
     Route: 058
     Dates: start: 20161026
  8. TEDUGLUTIDE [Suspect]
     Active Substance: TEDUGLUTIDE
     Dosage: 3.2 MILLIGRAM, QD
     Route: 058
     Dates: start: 20161026

REACTIONS (8)
  - Weight decreased [Unknown]
  - Gastrointestinal bacterial overgrowth [Recovering/Resolving]
  - Flatulence [Recovered/Resolved]
  - Vascular device infection [Recovering/Resolving]
  - Anal fissure [Unknown]
  - Abdominal discomfort [Recovering/Resolving]
  - Diarrhoea [Recovering/Resolving]
  - Scar pain [Recovering/Resolving]

NARRATIVE: CASE EVENT DATE: 20231003
